FAERS Safety Report 20532904 (Version 4)
Quarter: 2022Q1

REPORT INFORMATION
  Report Type: Spontaneous
  Country: CN (occurrence: CN)
  Receive Date: 20220301
  Receipt Date: 20220318
  Transmission Date: 20220423
  Serious: Yes (Death, Life-Threatening, Hospitalization, Other)
  Sender: FDA-Public Use
  Company Number: CN-009507513-2202CHN008127

PATIENT
  Age: 67 Year
  Sex: Male

DRUGS (19)
  1. KEYTRUDA [Suspect]
     Active Substance: PEMBROLIZUMAB
     Indication: Squamous cell carcinoma of lung
     Dosage: 200 MILLIGRAM, ONCE
     Route: 041
     Dates: start: 20220216, end: 20220216
  2. CILASTATIN SODIUM\IMIPENEM [Suspect]
     Active Substance: CILASTATIN SODIUM\IMIPENEM
     Indication: Anti-infective therapy
     Dosage: 1 GRAM, Q8H
     Route: 041
     Dates: start: 20220218, end: 20220223
  3. CILASTATIN SODIUM\IMIPENEM [Suspect]
     Active Substance: CILASTATIN SODIUM\IMIPENEM
     Dosage: 1 GRAM, Q8H
     Route: 041
     Dates: start: 20220225
  4. PACLITAXEL [Suspect]
     Active Substance: PACLITAXEL
     Indication: Squamous cell carcinoma of lung
     Dosage: 300 MILLIGRAM
     Route: 041
     Dates: start: 20220216
  5. CISPLATIN [Suspect]
     Active Substance: CISPLATIN
     Indication: Squamous cell carcinoma of lung
     Dosage: 40 MILLIGRAM, ONCE A DAY
     Route: 041
     Dates: start: 20220216
  6. SODIUM CHLORIDE [Concomitant]
     Active Substance: SODIUM CHLORIDE
     Dosage: 100 MILLILITER, ONCE
     Route: 041
     Dates: start: 20220216, end: 20220216
  7. SODIUM CHLORIDE [Concomitant]
     Active Substance: SODIUM CHLORIDE
     Dosage: 100 MILLILITER, ONCE
     Route: 041
     Dates: start: 20220216, end: 20220216
  8. SODIUM CHLORIDE [Concomitant]
     Active Substance: SODIUM CHLORIDE
     Dosage: 100 MILLILITER, ONCE A DAY
     Route: 041
     Dates: start: 20220216
  9. SODIUM CHLORIDE [Concomitant]
     Active Substance: SODIUM CHLORIDE
     Dosage: 500 MILLILITER, ONCE A DAY
     Route: 041
     Dates: start: 20220216
  10. SODIUM CHLORIDE [Concomitant]
     Active Substance: SODIUM CHLORIDE
     Dosage: 100 MILLILITER, ONCE A DAY
     Route: 041
     Dates: start: 20220216
  11. SODIUM CHLORIDE [Concomitant]
     Active Substance: SODIUM CHLORIDE
     Dosage: 200 MILLILITER, ONCE
     Route: 041
     Dates: start: 20220216, end: 20220216
  12. CIMETIDINE [Concomitant]
     Active Substance: CIMETIDINE
     Dosage: 0.6 GRAM, ONCE
     Route: 041
     Dates: start: 20220216, end: 20220216
  13. PHENERGAN [Concomitant]
     Active Substance: PROMETHAZINE HYDROCHLORIDE
     Dosage: 25 MILLIGRAM
     Route: 030
     Dates: start: 20220216
  14. DEXTROSE [Concomitant]
     Active Substance: DEXTROSE
     Dosage: 100 MILLILITER, ONCE
     Dates: start: 20220216
  15. DEXTROSE [Concomitant]
     Active Substance: DEXTROSE
     Dosage: 500 MILLILITER, ONCE
     Dates: start: 20220216
  16. FOSAPREPITANT DIMEGLUMINE [Concomitant]
     Active Substance: FOSAPREPITANT DIMEGLUMINE
     Dosage: 1 BOTTLE, ONCE
     Route: 041
     Dates: start: 20220216, end: 20220216
  17. DOLASETRON MESYLATE [Concomitant]
     Active Substance: DOLASETRON MESYLATE
     Dosage: 100 MILLILITER, ONCE A DAY
     Route: 041
     Dates: start: 20220216
  18. RABEPRAZOLE [Concomitant]
     Active Substance: RABEPRAZOLE
     Dosage: 20 MILLIGRAM, ONCE A DAY
     Route: 041
     Dates: start: 20220216
  19. KANG LAI TE [Concomitant]
     Dosage: 2 BOTTLES, QONCE A DAY
     Route: 041
     Dates: start: 20220216

REACTIONS (20)
  - Death [Fatal]
  - Coma [Recovered/Resolved]
  - Pneumonia [Unknown]
  - Immune-mediated myocarditis [Unknown]
  - Immune-mediated hepatitis [Unknown]
  - Immune-mediated nephritis [Unknown]
  - Respiratory failure [Not Recovered/Not Resolved]
  - Septic shock [Not Recovered/Not Resolved]
  - Myelosuppression [Not Recovered/Not Resolved]
  - Agranulocytosis [Not Recovered/Not Resolved]
  - Thrombocytopenia [Not Recovered/Not Resolved]
  - Acute kidney injury [Not Recovered/Not Resolved]
  - Gastrointestinal haemorrhage [Not Recovered/Not Resolved]
  - Unresponsive to stimuli [Not Recovered/Not Resolved]
  - Hepatic failure [Not Recovered/Not Resolved]
  - Pseudomonas infection [Not Recovered/Not Resolved]
  - Hypoproteinaemia [Not Recovered/Not Resolved]
  - Electrolyte imbalance [Not Recovered/Not Resolved]
  - Hypercapnia [Not Recovered/Not Resolved]
  - Pyrexia [Not Recovered/Not Resolved]

NARRATIVE: CASE EVENT DATE: 20220201
